FAERS Safety Report 9719207 (Version 2)
Quarter: 2013Q4

REPORT INFORMATION
  Report Type: Spontaneous
  Country: RU (occurrence: RU)
  Receive Date: 20131127
  Receipt Date: 20131226
  Transmission Date: 20140711
  Serious: Yes (Other)
  Sender: FDA-Public Use
  Company Number: PHHY2013RU136022

PATIENT
  Sex: Female

DRUGS (1)
  1. TRILEPTAL [Suspect]
     Dosage: 1 DF, UNK
     Dates: start: 2013

REACTIONS (3)
  - Convulsion [Unknown]
  - Amylase increased [Unknown]
  - Drug ineffective [Unknown]
